FAERS Safety Report 4617038-1 (Version None)
Quarter: 2005Q1

REPORT INFORMATION
  Report Type: 
  Country: None (occurrence: None)
  Receive Date: 20050323
  Receipt Date: 20050307
  Transmission Date: 20050727
  Serious: Yes (Other)
  Sender: FDA-Public Use
  Company Number: PHBS2005BR03394

PATIENT
  Age: 29 Year
  Sex: Female

DRUGS (1)
  1. PARLODEL [Suspect]
     Indication: PITUITARY TUMOUR BENIGN
     Dosage: 2.5 MG, QD
     Route: 048
     Dates: start: 20050210, end: 20050210

REACTIONS (6)
  - AUTOIMMUNE THYROIDITIS [None]
  - HYPOTENSION [None]
  - HYPOTHYROIDISM [None]
  - NAUSEA [None]
  - THYROXINE DECREASED [None]
  - VOMITING [None]
